FAERS Safety Report 5289114-4 (Version None)
Quarter: 2007Q1

REPORT INFORMATION
  Report Type: 
  Country: None (occurrence: None)
  Receive Date: 20070124
  Receipt Date: 20061011
  Transmission Date: 20070707
  Serious: Yes (Hospitalization)
  Sender: FDA-Public Use
  Company Number: US200610002114

PATIENT
  Sex: Female

DRUGS (3)
  1. FORTEO [Suspect]
     Dates: start: 20051125
  2. FORTEO [Concomitant]
  3. OXYGEN (OXYGEN) [Concomitant]

REACTIONS (2)
  - LUNG DISORDER [None]
  - PNEUMONIA [None]
